FAERS Safety Report 10341920 (Version 6)
Quarter: 2015Q1

REPORT INFORMATION
  Report Type: Report from Study
  Country: CA (occurrence: CA)
  Receive Date: 20140725
  Receipt Date: 20150320
  Transmission Date: 20150720
  Serious: Yes (Hospitalization)
  Sender: FDA-Public Use
  Company Number: CA-JNJFOC-20140604280

PATIENT
  Age: 73 Year
  Sex: Male

DRUGS (2)
  1. PREDNISONE. [Suspect]
     Active Substance: PREDNISONE
     Indication: PROPHYLAXIS
     Route: 065
     Dates: start: 2014
  2. ZYTIGA [Suspect]
     Active Substance: ABIRATERONE ACETATE
     Indication: PROSTATE CANCER METASTATIC
     Dosage: 4 PILLS/DAY
     Route: 048
     Dates: start: 20140607

REACTIONS (11)
  - Drug dispensing error [Unknown]
  - Arrhythmia [Unknown]
  - Glycosylated haemoglobin increased [Not Recovered/Not Resolved]
  - Pollakiuria [Recovered/Resolved]
  - Insomnia [Recovered/Resolved]
  - Asthenia [Unknown]
  - Weight decreased [Recovered/Resolved]
  - Blood glucose increased [Recovered/Resolved]
  - Overdose [Unknown]
  - Fatigue [Unknown]
  - Surgery [Unknown]

NARRATIVE: CASE EVENT DATE: 2014
